FAERS Safety Report 4928306-8 (Version None)
Quarter: 2006Q1

REPORT INFORMATION
  Report Type: 
  Country: None (occurrence: None)
  Receive Date: 20060223
  Receipt Date: 20060214
  Transmission Date: 20060701
  Serious: Yes (Other)
  Sender: FDA-Public Use
  Company Number: 13197

PATIENT
  Age: 51 Year
  Sex: Male

DRUGS (7)
  1. AMIKACIN [Suspect]
     Indication: ENDOPHTHALMITIS
     Dosage: 400 UG ONCE INVIT
  2. DEXAMETHASONE [Concomitant]
  3. GENTAMYCIN-MP [Concomitant]
  4. VANCOMYCIN [Concomitant]
  5. CIPROFLOXACIN HCL [Concomitant]
  6. HOMATROPINE [Concomitant]
  7. PREDNISOLONE [Concomitant]

REACTIONS (12)
  - BLINDNESS UNILATERAL [None]
  - CATARACT [None]
  - ERYTHEMA [None]
  - LACRIMATION INCREASED [None]
  - MACULAR OEDEMA [None]
  - MYOPIA [None]
  - PAIN [None]
  - RETINAL DISORDER [None]
  - RETINAL EXUDATES [None]
  - RETINAL HAEMORRHAGE [None]
  - RETINAL INFARCTION [None]
  - RETINAL ISCHAEMIA [None]
